FAERS Safety Report 23510988 (Version 1)
Quarter: 2024Q1

REPORT INFORMATION
  Report Type: Spontaneous
  Country: US (occurrence: US)
  Receive Date: 20240212
  Receipt Date: 20240212
  Transmission Date: 20240409
  Serious: No
  Sender: FDA-Public Use
  Company Number: US-UROGEN PHARMA LTD.-2023-UGN-000103

PATIENT

DRUGS (2)
  1. JELMYTO [Suspect]
     Active Substance: MITOMYCIN
     Indication: Product used for unknown indication
     Dosage: UNK, INSTILLATION
     Route: 065
     Dates: start: 20231129, end: 20231129
  2. JELMYTO [Suspect]
     Active Substance: MITOMYCIN
     Dosage: UNK, INTILLATION
     Route: 065
     Dates: start: 20231213, end: 20231213

REACTIONS (3)
  - Pyrexia [Unknown]
  - Flank pain [Unknown]
  - Rash [Unknown]

NARRATIVE: CASE EVENT DATE: 20231129
